FAERS Safety Report 20283256 (Version 2)
Quarter: 2022Q1

REPORT INFORMATION
  Report Type: Spontaneous
  Country: JP (occurrence: JP)
  Receive Date: 20220103
  Receipt Date: 20220202
  Transmission Date: 20220423
  Serious: Yes (Hospitalization, Other)
  Sender: FDA-Public Use
  Company Number: JP-Merck Healthcare KGaA-9289230

PATIENT

DRUGS (2)
  1. ERBITUX [Suspect]
     Active Substance: CETUXIMAB
     Indication: Bone cancer
     Dosage: UNK UNK, UNKNOWN
     Route: 041
     Dates: start: 202111
  2. PACLITAXEL [Suspect]
     Active Substance: PACLITAXEL
     Indication: Bone cancer
     Dosage: UNK UNK, UNKNOWN
     Route: 065
     Dates: start: 202111

REACTIONS (2)
  - Febrile neutropenia [Recovered/Resolved]
  - Off label use [Unknown]

NARRATIVE: CASE EVENT DATE: 20211101
